FAERS Safety Report 9490492 (Version 1)
Quarter: 2013Q3

REPORT INFORMATION
  Report Type: Spontaneous
  Country: US (occurrence: None)
  Receive Date: 20130827
  Receipt Date: 20130827
  Transmission Date: 20140515
  Serious: Yes (Life-Threatening, Disabling)
  Sender: FDA-Public Use
  Company Number: None

PATIENT
  Age: 56 None
  Sex: Male
  Weight: 97.52 kg

DRUGS (5)
  1. MELOXICAM [Suspect]
     Indication: ARTHRITIS
     Dates: start: 201203, end: 201207
  2. ENALAPRIL MALEATE [Concomitant]
  3. HYDROCHLOROTHIAZIDE [Concomitant]
  4. METOPROLOL [Concomitant]
  5. ASPIRIN [Concomitant]

REACTIONS (5)
  - Dyspnoea [None]
  - Chest discomfort [None]
  - Pain [None]
  - Dizziness [None]
  - Heart rate increased [None]
